FAERS Safety Report 6582178-7 (Version None)
Quarter: 2010Q1

REPORT INFORMATION
  Report Type: 
  Country: None (occurrence: None)
  Receive Date: 20100212
  Receipt Date: 20100212
  Transmission Date: 20100710
  Serious: Yes (Life-Threatening, Other)
  Sender: FDA-Public Use
  Company Number: None

PATIENT

DRUGS (2)
  1. NEXIUM [Suspect]
     Dates: start: 20091101, end: 20100101
  2. HYOMAX [Suspect]
     Dates: start: 20091101

REACTIONS (5)
  - MYOCARDIAL INFARCTION [None]
  - PRODUCT ODOUR ABNORMAL [None]
  - PRODUCT QUALITY ISSUE [None]
  - PRODUCT TAMPERING [None]
  - WEIGHT DECREASED [None]
